FAERS Safety Report 7033980-9 (Version None)
Quarter: 2010Q4

REPORT INFORMATION
  Report Type: 
  Country: None (occurrence: None)
  Receive Date: 20101005
  Receipt Date: 20100922
  Transmission Date: 20110411
  Serious: Yes (Other)
  Sender: FDA-Public Use
  Company Number: US-003774

PATIENT
  Sex: Female

DRUGS (1)
  1. TRANEXAMIC ACID [Suspect]
     Dates: start: 20100921

REACTIONS (3)
  - CRYING [None]
  - DYSSTASIA [None]
  - SPEECH DISORDER [None]
